FAERS Safety Report 4662996-2 (Version None)
Quarter: 2005Q2

REPORT INFORMATION
  Report Type: 
  Country: None (occurrence: None)
  Receive Date: 20050511
  Receipt Date: 20040603
  Transmission Date: 20051028
  Serious: Yes (Other)
  Sender: FDA-Public Use
  Company Number: ZONI001447

PATIENT
  Age: 51 Year
  Sex: Female
  Weight: 40 kg

DRUGS (3)
  1. ZONEGRAN [Suspect]
     Indication: EPILEPSY
     Dosage: 200 MG DAILY, ORAL
     Route: 048
     Dates: start: 20030703
  2. MYSOLINE [Suspect]
     Dosage: 750 MG DAILY
  3. ZOLOFT [Concomitant]

REACTIONS (1)
  - WEIGHT DECREASED [None]
